FAERS Safety Report 13766831 (Version 1)
Quarter: 2017Q3

REPORT INFORMATION
  Report Type: Spontaneous
  Country: US (occurrence: US)
  Receive Date: 20170718
  Receipt Date: 20170718
  Transmission Date: 20171127
  Serious: Yes (Disabling)
  Sender: FDA-Public Use
  Company Number: None

PATIENT
  Age: 44 Year
  Sex: Female
  Weight: 117 kg

DRUGS (11)
  1. JARDIANCE [Concomitant]
     Active Substance: EMPAGLIFLOZIN
  2. HYDROCODONE [Concomitant]
     Active Substance: HYDROCODONE
  3. CYMBALTA [Concomitant]
     Active Substance: DULOXETINE HYDROCHLORIDE
  4. FLONASE [Concomitant]
     Active Substance: FLUTICASONE PROPIONATE
  5. VENTOLEN INHALER, [Concomitant]
  6. ALLEGRA [Concomitant]
     Active Substance: FEXOFENADINE HYDROCHLORIDE
  7. ELIQUIS [Concomitant]
     Active Substance: APIXABAN
  8. AVELOX [Suspect]
     Active Substance: MOXIFLOXACIN HYDROCHLORIDE
     Indication: BRONCHITIS
     Dosage: ?          QUANTITY:20 CAPSULE(S);?
     Route: 048
  9. VITAMIN D2, [Concomitant]
  10. PROPAFENONE. [Concomitant]
     Active Substance: PROPAFENONE
  11. CPAP [Concomitant]
     Active Substance: DEVICE

REACTIONS (3)
  - Atrial fibrillation [None]
  - Arrhythmia [None]
  - Palpitations [None]

NARRATIVE: CASE EVENT DATE: 20090710
